FAERS Safety Report 8210850-1 (Version None)
Quarter: 2012Q1

REPORT INFORMATION
  Report Type: 
  Country: None (occurrence: None)
  Receive Date: 20120315
  Receipt Date: 20120312
  Transmission Date: 20120608
  Serious: No
  Sender: FDA-Public Use
  Company Number: US-BIOGENIDEC-2012BI008881

PATIENT
  Age: 48 Year
  Sex: Female

DRUGS (2)
  1. REBIF [Concomitant]
     Dates: start: 20080101
  2. TYSABRI [Suspect]
     Indication: MULTIPLE SCLEROSIS
     Route: 042
     Dates: start: 20111207

REACTIONS (3)
  - MUSCULAR WEAKNESS [None]
  - POOR VENOUS ACCESS [None]
  - SENSATION OF HEAVINESS [None]
